FAERS Safety Report 14620321 (Version 1)
Quarter: 2018Q1

REPORT INFORMATION
  Report Type: Spontaneous
  Country: FR (occurrence: FR)
  Receive Date: 20180309
  Receipt Date: 20180309
  Transmission Date: 20180509
  Serious: Yes (Disabling)
  Sender: FDA-Public Use
  Company Number: FR-ELI_LILLY_AND_COMPANY-FR201803001577

PATIENT
  Age: 65 Year
  Sex: Male
  Weight: 59 kg

DRUGS (2)
  1. CARBOPLATIN ACCORD [Suspect]
     Active Substance: CARBOPLATIN
     Indication: LUNG ADENOCARCINOMA
     Dosage: 600 MG, UNKNOWN
     Route: 042
     Dates: start: 20170529, end: 20170731
  2. ALIMTA [Suspect]
     Active Substance: PEMETREXED DISODIUM
     Indication: LUNG ADENOCARCINOMA
     Dosage: 837.5 MG, UNKNOWN
     Route: 042
     Dates: start: 20170529

REACTIONS (3)
  - Off label use [Unknown]
  - Ototoxicity [Recovered/Resolved with Sequelae]
  - Deafness bilateral [Recovered/Resolved with Sequelae]

NARRATIVE: CASE EVENT DATE: 201709
